FAERS Safety Report 9178283 (Version 1)
Quarter: 2012Q4

REPORT INFORMATION
  Report Type: 
  Country: BE (occurrence: BE)
  Receive Date: 20121029
  Receipt Date: 20121029
  Transmission Date: 20130627
  Serious: Yes (Death)
  Sender: FDA-Public Use
  Company Number: BE-PFIZER INC-2012267665

PATIENT
  Age: 87 Year
  Sex: Female

DRUGS (10)
  1. ACCURETIC [Suspect]
     Dosage: UNK
  2. GLUCOPHAGE [Suspect]
     Dosage: 850 mg, 3x/day
  3. BURINEX [Suspect]
     Dosage: 1 mg, 1x/day
  4. EMCONCOR [Concomitant]
     Dosage: 10 mg, 1x/day
  5. VENLAFAXINE [Concomitant]
     Indication: DEPRESSION
     Dosage: 75 mg, 1x/day
  6. REDOMEX [Concomitant]
     Dosage: 10 mg, 1x/day
  7. AMLOR [Concomitant]
     Dosage: 5 mg, UNK
  8. STAURODORM [Concomitant]
     Dosage: 27 mg, 1x/day
  9. CRESTOR [Concomitant]
     Dosage: 10 mg, 1x/day
  10. ASAFLOW [Concomitant]
     Dosage: 80 mg, UNK

REACTIONS (3)
  - Coma [Fatal]
  - Renal failure acute [Fatal]
  - Lactic acidosis [Fatal]
